FAERS Safety Report 9195730 (Version 1)
Quarter: 2013Q1

REPORT INFORMATION
  Report Type: Spontaneous
  Country: US (occurrence: None)
  Receive Date: 20130325
  Receipt Date: 20130325
  Transmission Date: 20140127
  Serious: Yes (Other)
  Sender: FDA-Public Use
  Company Number: None

PATIENT
  Sex: 0

DRUGS (2)
  1. ESCITALOPRAM [Suspect]
     Indication: DEPRESSION
     Route: 048
  2. ESCITALOPRAM [Suspect]
     Indication: ANXIETY
     Route: 048

REACTIONS (6)
  - Depression [None]
  - Lethargy [None]
  - Sedation [None]
  - Product substitution issue [None]
  - Product substitution issue [None]
  - Product quality issue [None]
